FAERS Safety Report 9889567 (Version 2)
Quarter: 2014Q2

REPORT INFORMATION
  Report Type: Report from Study
  Country: DE (occurrence: DE)
  Receive Date: 20140211
  Receipt Date: 20140521
  Transmission Date: 20141212
  Serious: Yes (Hospitalization)
  Sender: FDA-Public Use
  Company Number: DE-ABBVIE-14P-062-1198211-00

PATIENT
  Age: 36 Year
  Sex: Female
  Weight: 61 kg

DRUGS (5)
  1. HUMIRA [Suspect]
     Indication: CROHN^S DISEASE
     Route: 058
     Dates: start: 20120112, end: 20130628
  2. MESALAZINE [Concomitant]
     Indication: CROHN^S DISEASE
     Dates: start: 20131230
  3. DECORTIN [Concomitant]
     Indication: PRODUCT USED FOR UNKNOWN INDICATION
     Dosage: DOSE DECREASED NOS
     Dates: start: 20131121, end: 20131223
  4. DECORTIN [Concomitant]
     Dates: start: 20131223
  5. PANTOZOL [Concomitant]
     Indication: PRODUCT USED FOR UNKNOWN INDICATION

REACTIONS (3)
  - Anastomotic stenosis [Recovered/Resolved]
  - Haematoma [Recovered/Resolved]
  - Nasopharyngitis [Recovered/Resolved]
